FAERS Safety Report 6705196-4 (Version None)
Quarter: 2010Q2

REPORT INFORMATION
  Report Type: 
  Country: None (occurrence: None)
  Receive Date: 20100430
  Receipt Date: 20100421
  Transmission Date: 20101027
  Serious: Yes (Hospitalization)
  Sender: FDA-Public Use
  Company Number: US-ABBOTT-10P-163-0640188-00

PATIENT
  Sex: Male
  Weight: 70.37 kg

DRUGS (1)
  1. HUMIRA [Suspect]
     Indication: CROHN'S DISEASE
     Dates: start: 20060101

REACTIONS (5)
  - ABDOMINAL PAIN [None]
  - CROHN'S DISEASE [None]
  - DRUG DOSE OMISSION [None]
  - GASTRIC INFECTION [None]
  - LIGAMENT RUPTURE [None]
